FAERS Safety Report 17307887 (Version 1)
Quarter: 2020Q1

REPORT INFORMATION
  Report Type: Spontaneous
  Country: None (occurrence: US)
  Receive Date: 20200123
  Receipt Date: 20200123
  Transmission Date: 20200409
  Serious: Yes (Other)
  Sender: FDA-Public Use
  Company Number: US-GLAXOSMITHKLINE-US2020GSK012368

PATIENT
  Sex: Male

DRUGS (2)
  1. LANSOPRAZOLE. [Suspect]
     Active Substance: LANSOPRAZOLE
     Indication: GASTROOESOPHAGEAL REFLUX DISEASE
     Dosage: 30 MG, QD
     Route: 065
  2. OMEPRAZOLE. [Suspect]
     Active Substance: OMEPRAZOLE
     Indication: GASTROOESOPHAGEAL REFLUX DISEASE
     Dosage: 40 MG, QD
     Route: 048

REACTIONS (13)
  - Chronic kidney disease [Not Recovered/Not Resolved]
  - Renal failure [Unknown]
  - Dysuria [Unknown]
  - Renal cell carcinoma [Unknown]
  - Nephrectomy [Unknown]
  - Oliguria [Unknown]
  - Calculus urinary [Unknown]
  - Nephrolithiasis [Unknown]
  - Renal mass [Unknown]
  - Single functional kidney [Unknown]
  - Nephropathy [Unknown]
  - Urinary hesitation [Unknown]
  - Renal cancer [Unknown]
